FAERS Safety Report 7004445-5 (Version None)
Quarter: 2010Q3

REPORT INFORMATION
  Report Type: 
  Country: None (occurrence: None)
  Receive Date: 20100921
  Receipt Date: 20100913
  Transmission Date: 20110219
  Serious: No
  Sender: FDA-Public Use
  Company Number: US-BIOGENIDEC-2010BI032011

PATIENT
  Age: 54 Year
  Sex: Female

DRUGS (1)
  1. TYSABRI [Suspect]
     Indication: MULTIPLE SCLEROSIS
     Route: 042
     Dates: start: 20090922

REACTIONS (9)
  - BACK PAIN [None]
  - COORDINATION ABNORMAL [None]
  - CYST [None]
  - FATIGUE [None]
  - MUSCLE FATIGUE [None]
  - MUSCULAR WEAKNESS [None]
  - NAIL DISORDER [None]
  - NAIL GROWTH ABNORMAL [None]
  - VAGINAL CYST [None]
